FAERS Safety Report 11574203 (Version 2)
Quarter: 2015Q4

REPORT INFORMATION
  Report Type: Spontaneous
  Country: US (occurrence: US)
  Receive Date: 20150930
  Receipt Date: 20151105
  Transmission Date: 20160304
  Serious: Yes (Death, Hospitalization, Other)
  Sender: FDA-Public Use
  Company Number: US-ASTRAZENECA-2015SE93515

PATIENT
  Age: 78 Year
  Sex: Female
  Weight: 58.5 kg

DRUGS (16)
  1. ENOXAPARIN [Concomitant]
     Active Substance: ENOXAPARIN
     Dosage: 100 MG/ML UNDER THE SKIN DAILY
     Route: 058
  2. LOVENOX [Concomitant]
     Active Substance: ENOXAPARIN SODIUM
  3. ERIBULIN [Concomitant]
     Active Substance: ERIBULIN
     Dosage: HALF DOSE
     Dates: start: 20150609
  4. LASIX [Concomitant]
     Active Substance: FUROSEMIDE
     Route: 048
  5. NORVASC [Concomitant]
     Active Substance: AMLODIPINE BESYLATE
     Route: 048
  6. FASLODEX [Suspect]
     Active Substance: FULVESTRANT
     Route: 030
     Dates: start: 201109
  7. PALBOCICLIB [Suspect]
     Active Substance: PALBOCICLIB
     Indication: OESTROGEN RECEPTOR POSITIVE BREAST CANCER
     Route: 048
     Dates: start: 20150901, end: 20150914
  8. LASIX [Concomitant]
     Active Substance: FUROSEMIDE
     Route: 048
  9. LOPRESSOR [Concomitant]
     Active Substance: METOPROLOL TARTRATE
     Route: 048
  10. MULTIVITAMIN [Concomitant]
     Active Substance: VITAMINS
     Route: 048
  11. HIPREX [Concomitant]
     Active Substance: METHENAMINE HIPPURATE
     Route: 048
  12. ERIBULIN [Concomitant]
     Active Substance: ERIBULIN
     Dates: end: 201108
  13. PRILOSEC [Concomitant]
     Active Substance: OMEPRAZOLE MAGNESIUM
     Route: 048
  14. BAZEDOXIFENE [Suspect]
     Active Substance: BAZEDOXIFENE
     Indication: OESTROGEN RECEPTOR POSITIVE BREAST CANCER
     Route: 048
     Dates: start: 20150901, end: 20150922
  15. DIOVAN [Concomitant]
     Active Substance: VALSARTAN
     Route: 048
  16. KLOR-CON [Concomitant]
     Active Substance: POTASSIUM CHLORIDE
     Route: 048

REACTIONS (32)
  - Thrombocytopenia [Unknown]
  - Dehydration [Unknown]
  - Tachypnoea [Not Recovered/Not Resolved]
  - Decubitus ulcer [Unknown]
  - Fatigue [Unknown]
  - Small intestinal obstruction [Unknown]
  - Malignant neoplasm progression [Unknown]
  - Oedema peripheral [Unknown]
  - Cognitive disorder [Unknown]
  - Decreased appetite [Unknown]
  - Abdominal discomfort [Not Recovered/Not Resolved]
  - Urinary tract infection [Not Recovered/Not Resolved]
  - Pancytopenia [Unknown]
  - Haemorrhoids [Unknown]
  - Mental impairment [Unknown]
  - Arteriosclerosis coronary artery [Unknown]
  - Metastases to liver [Unknown]
  - Confusional state [Unknown]
  - Abdominal distension [Unknown]
  - Pyrexia [Unknown]
  - Cardiac failure congestive [Not Recovered/Not Resolved]
  - Neutrophil count decreased [Unknown]
  - Stomatitis [Unknown]
  - Ascites [Unknown]
  - Nausea [Unknown]
  - Arthritis [Unknown]
  - Acute kidney injury [Unknown]
  - Proctalgia [Unknown]
  - Metastases to bone [Unknown]
  - Neutropenia [Not Recovered/Not Resolved]
  - Temperature intolerance [Unknown]
  - Vomiting [Unknown]

NARRATIVE: CASE EVENT DATE: 20150624
